FAERS Safety Report 5548818-6 (Version None)
Quarter: 2007Q4

REPORT INFORMATION
  Report Type: 
  Country: None (occurrence: None)
  Receive Date: 20071211
  Receipt Date: 20070403
  Transmission Date: 20080405
  Serious: No
  Sender: FDA-Public Use
  Company Number: US-AMGEN-KDL212503

PATIENT
  Sex: Male

DRUGS (7)
  1. ENBREL [Suspect]
     Indication: PSORIASIS
     Route: 058
     Dates: start: 20041001
  2. ISONIAZID [Concomitant]
  3. ASPIRIN [Concomitant]
  4. VITAMIN CAP [Concomitant]
  5. PROCARDIA XL [Concomitant]
  6. LISINOPRIL [Concomitant]
  7. UNSPECIFIED MEDICATION [Concomitant]

REACTIONS (6)
  - EAR PAIN [None]
  - HEADACHE [None]
  - HYPERTENSION [None]
  - PAIN [None]
  - TUBERCULOSIS SKIN TEST POSITIVE [None]
  - VISUAL DISTURBANCE [None]
